FAERS Safety Report 20856937 (Version 1)
Quarter: 2022Q2

REPORT INFORMATION
  Report Type: Spontaneous
  Country: GB (occurrence: US)
  Receive Date: 20220520
  Receipt Date: 20220520
  Transmission Date: 20220720
  Serious: No
  Sender: FDA-Public Use
  Company Number: GB-SA-SAC20220517000636

PATIENT
  Sex: Female

DRUGS (1)
  1. DUPIXENT [Suspect]
     Active Substance: DUPILUMAB
     Indication: Dermatitis atopic
     Dosage: 300 MG, QOW

REACTIONS (2)
  - Vision blurred [Unknown]
  - Discomfort [Unknown]
